FAERS Safety Report 7098787-5 (Version None)
Quarter: 2010Q4

REPORT INFORMATION
  Report Type: 
  Country: None (occurrence: None)
  Receive Date: 20101110
  Receipt Date: 20101110
  Transmission Date: 20110411
  Serious: Yes (Hospitalization)
  Sender: FDA-Public Use
  Company Number: None

PATIENT
  Age: 89 Year
  Sex: Male
  Weight: 86 kg

DRUGS (1)
  1. HYDROCORTISONE [Suspect]
     Indication: PROSTATE CANCER
     Dates: start: 20070912, end: 20100517

REACTIONS (3)
  - GENERALISED OEDEMA [None]
  - HYPOALBUMINAEMIA [None]
  - SCROTAL SWELLING [None]
